FAERS Safety Report 25667762 (Version 1)
Quarter: 2025Q3

REPORT INFORMATION
  Report Type: Spontaneous
  Country: EU (occurrence: EU)
  Receive Date: 20250812
  Receipt Date: 20250812
  Transmission Date: 20251021
  Serious: Yes (Disabling)
  Sender: TEVA
  Company Number: None

PATIENT
  Age: 81 Year
  Sex: Male
  Weight: 80 kg

DRUGS (1)
  1. LINEZOLID [Suspect]
     Active Substance: LINEZOLID
     Indication: Mediastinitis
     Dosage: LINEZOLID TEVA
     Route: 065
     Dates: start: 20250527, end: 20250710

REACTIONS (3)
  - Anaemia [Recovering/Resolving]
  - Peroneal nerve palsy [Not Recovered/Not Resolved]
  - Nausea [Recovered/Resolved]

NARRATIVE: CASE EVENT DATE: 20250630
